FAERS Safety Report 9844844 (Version 1)
Quarter: 2014Q1

REPORT INFORMATION
  Report Type: Spontaneous
  Country: US (occurrence: None)
  Receive Date: 20140123
  Receipt Date: 20140123
  Transmission Date: 20141002
  Serious: Yes (Life-Threatening, Hospitalization)
  Sender: FDA-Public Use
  Company Number: None

PATIENT
  Age: 60 Year
  Sex: Female
  Weight: 77.11 kg

DRUGS (2)
  1. HUMIRA [Suspect]
     Indication: ARTHRITIS
     Dosage: 40 MG EVERY 2 WEEKS INTO THE MUSCLE
     Route: 030
     Dates: start: 20140110
  2. METHOTREXATE [Suspect]
     Indication: ARTHRITIS
     Dosage: 8 TABLETS WEEKLY TAKEN BY MOUTH
     Route: 048
     Dates: start: 20140110

REACTIONS (3)
  - Pyrexia [None]
  - Fear [None]
  - Escherichia infection [None]
